FAERS Safety Report 9530161 (Version 2)
Quarter: 2014Q1

REPORT INFORMATION
  Report Type: Spontaneous
  Country: US (occurrence: US)
  Receive Date: 20130917
  Receipt Date: 20140123
  Transmission Date: 20141002
  Serious: Yes (Life-Threatening, Hospitalization, Disabling, Other)
  Sender: FDA-Public Use
  Company Number: CHPA2013US014112

PATIENT
  Age: 59 Year
  Sex: Male

DRUGS (3)
  1. EXCEDRIN EXTRA STRENGTH [Suspect]
     Indication: HEADACHE
     Dosage: UNK, UNK
     Route: 048
  2. EXCEDRIN EXTRA STRENGTH [Suspect]
     Indication: HEADACHE
     Dosage: 2 DF, UNK
     Route: 048
     Dates: start: 1971, end: 2012
  3. OPIOIDS [Concomitant]
     Indication: PROCEDURAL PAIN
     Dosage: UNK

REACTIONS (16)
  - Pyrexia [Recovered/Resolved]
  - Iritis [Not Recovered/Not Resolved]
  - Vomiting [Recovered/Resolved]
  - Obstruction [Unknown]
  - Gastric disorder [Recovered/Resolved]
  - Gastric perforation [Unknown]
  - Blindness [Recovered/Resolved]
  - Back injury [Recovered/Resolved]
  - Vitreous floaters [Unknown]
  - Incisional hernia [Recovered/Resolved]
  - Procedural complication [Unknown]
  - Post procedural complication [Unknown]
  - Disability [Not Recovered/Not Resolved]
  - Headache [Not Recovered/Not Resolved]
  - Disease recurrence [Not Recovered/Not Resolved]
  - Drug ineffective [Unknown]
